FAERS Safety Report 4616929-5 (Version None)
Quarter: 2005Q1

REPORT INFORMATION
  Report Type: 
  Country: None (occurrence: None)
  Receive Date: 20050321
  Receipt Date: 20050307
  Transmission Date: 20050727
  Serious: Yes (Other)
  Sender: FDA-Public Use
  Company Number: 2005041215

PATIENT
  Age: 69 Year
  Sex: Female

DRUGS (6)
  1. CABERGOLINE [Suspect]
     Indication: ILL-DEFINED DISORDER
     Dosage: 4 MG, ORAL
     Route: 048
     Dates: start: 20010101
  2. ALL OTHER THERAPEUTIC PRODUCTS (ALL OTHER THERAPEUTIC PRODUCTS) [Concomitant]
  3. ATENOLOL [Concomitant]
  4. PHENPROCOUMON (PHENPROCOUMON) [Concomitant]
  5. TORSEMIDE [Concomitant]
  6. MACROGOL (MACROGOL) [Concomitant]

REACTIONS (2)
  - MITRAL VALVE DISEASE [None]
  - TRICUSPID VALVE DISEASE [None]
